FAERS Safety Report 7480853-3 (Version None)
Quarter: 2011Q2

REPORT INFORMATION
  Report Type: 
  Country: None (occurrence: None)
  Receive Date: 20110506
  Receipt Date: 20110428
  Transmission Date: 20111010
  Serious: Yes (Hospitalization)
  Sender: FDA-Public Use
  Company Number: CIP10002481

PATIENT
  Age: 87 Year
  Sex: Female
  Weight: 43 kg

DRUGS (14)
  1. LABIRIN (BETAHISTINE HYDROCHLORIDE) [Suspect]
     Indication: LABYRINTHITIS
  2. SUPRADYN /01713001/ (MINERALS NOS, VITAMINS NOS) [Concomitant]
  3. LOPRAZOL (OMEPRAZOLE) [Concomitant]
  4. RIVOTRIL (CLONAZEPAM) [Concomitant]
  5. DIOVAN [Concomitant]
  6. ACTONEL [Suspect]
     Indication: ARTHRITIS
     Dosage: 35 MG, ORAL, 35 MG, ORAL
     Route: 048
     Dates: start: 20101001
  7. ACTONEL [Suspect]
     Indication: OSTEOPOROSIS
     Dosage: 35 MG, ORAL, 35 MG, ORAL
     Route: 048
     Dates: start: 20101001
  8. ACTONEL [Suspect]
     Indication: OSTEOARTHRITIS
     Dosage: 35 MG, ORAL, 35 MG, ORAL
     Route: 048
     Dates: start: 20101001
  9. ACTONEL [Suspect]
     Indication: ARTHRITIS
     Dosage: 35 MG, ORAL, 35 MG, ORAL
     Route: 048
     Dates: start: 20080101, end: 20100601
  10. ACTONEL [Suspect]
     Indication: OSTEOPOROSIS
     Dosage: 35 MG, ORAL, 35 MG, ORAL
     Route: 048
     Dates: start: 20080101, end: 20100601
  11. ACTONEL [Suspect]
     Indication: OSTEOARTHRITIS
     Dosage: 35 MG, ORAL, 35 MG, ORAL
     Route: 048
     Dates: start: 20080101, end: 20100601
  12. CITALOPRAM HYDROBROMIDE [Concomitant]
  13. CALTRATE /00108001/ CALCIUM CARBONATE [Concomitant]
  14. SUSTRATE (PROPATYLNITRATE) [Concomitant]

REACTIONS (15)
  - FALL [None]
  - BALANCE DISORDER [None]
  - INTRA-ABDOMINAL HAEMORRHAGE [None]
  - LUNG DISORDER [None]
  - RIB FRACTURE [None]
  - LABYRINTHITIS [None]
  - FRACTURED ISCHIUM [None]
  - PUBIS FRACTURE [None]
  - SYNCOPE [None]
  - CONDITION AGGRAVATED [None]
  - DIZZINESS [None]
  - PELVIC FRACTURE [None]
  - PAIN [None]
  - HEAD INJURY [None]
  - SKIN FISSURES [None]
